FAERS Safety Report 8529783-6 (Version None)
Quarter: 2012Q3

REPORT INFORMATION
  Report Type: 
  Country: None (occurrence: None)
  Receive Date: 20120710
  Receipt Date: 20100717
  Transmission Date: 20120928
  Serious: Yes (Hospitalization, Other)
  Sender: FDA-Public Use
  Company Number: 2010AP001472

PATIENT
  Age: 22 Year
  Sex: Male

DRUGS (2)
  1. RISPERIDONE [Suspect]
     Indication: EXCESSIVE MASTURBATION
     Dosage: 1 MG;QD
  2. RISPERIDONE [Suspect]
     Indication: AGGRESSION
     Dosage: 1 MG;QD

REACTIONS (5)
  - GASTRODUODENAL ULCER [None]
  - BARRETT'S OESOPHAGUS [None]
  - MELAENA [None]
  - HAEMATEMESIS [None]
  - HYPERPROLACTINAEMIA [None]
